FAERS Safety Report 8189748-3 (Version None)
Quarter: 2012Q1

REPORT INFORMATION
  Report Type: 
  Country: None (occurrence: None)
  Receive Date: 20120221
  Receipt Date: 20120116
  Transmission Date: 20120608
  Serious: No
  Sender: FDA-Public Use
  Company Number: 1000027157

PATIENT
  Sex: Male

DRUGS (1)
  1. VIIBRYD [Suspect]
     Dosage: 10 MG (10 MG, 1 IN 1 D), ORAL
     Route: 048
     Dates: start: 20120112

REACTIONS (3)
  - WEIGHT DECREASED [None]
  - DECREASED APPETITE [None]
  - INSOMNIA [None]
